FAERS Safety Report 18513999 (Version 1)
Quarter: 2020Q4

REPORT INFORMATION
  Report Type: Spontaneous
  Country: US (occurrence: US)
  Receive Date: 20201117
  Receipt Date: 20201117
  Transmission Date: 20210114
  Serious: Yes (Hospitalization, Other)
  Sender: FDA-Public Use
  Company Number: US-009507513-2011USA006631

PATIENT
  Age: 54 Year
  Sex: Female
  Weight: 64.9 kg

DRUGS (48)
  1. PRINIVIL [Suspect]
     Active Substance: LISINOPRIL
     Indication: HYPERTENSION
     Dosage: 5 MILLIGRAM, QD
     Route: 048
  2. BRILINTA [Suspect]
     Active Substance: TICAGRELOR
     Indication: HAEMORRHAGE
     Dosage: 180 MILLIGRAM, QD
     Route: 048
     Dates: start: 2009, end: 2009
  3. BRILINTA [Suspect]
     Active Substance: TICAGRELOR
     Indication: MYOCARDIAL INFARCTION
  4. NEXIUM [Suspect]
     Active Substance: ESOMEPRAZOLE MAGNESIUM
     Indication: GASTRIC DISORDER
     Dosage: 40 MILLIGRAM, QD
     Route: 048
     Dates: end: 20140520
  5. FUROSEMIDE. [Concomitant]
     Active Substance: FUROSEMIDE
     Indication: DIURETIC THERAPY
     Dosage: 40 MG PRN
     Route: 048
     Dates: start: 2009
  6. ASPIRIN. [Concomitant]
     Active Substance: ASPIRIN
     Indication: SUPPLEMENTATION THERAPY
     Dosage: 81 MILLIGRAM, QD
     Route: 048
     Dates: start: 2013
  7. GARLIC. [Concomitant]
     Active Substance: GARLIC
     Indication: CARDIAC DISORDER
     Dosage: 1000 MILLIGRAM, QD
     Route: 048
  8. CRESTOR [Suspect]
     Active Substance: ROSUVASTATIN CALCIUM
     Indication: DYSLIPIDAEMIA
     Dosage: 10 MILLIGRAM, QD
     Route: 048
     Dates: start: 2012
  9. PLAVIX [Suspect]
     Active Substance: CLOPIDOGREL BISULFATE
     Route: 065
     Dates: end: 2009
  10. INOSITOL NIACINATE [Concomitant]
     Active Substance: INOSITOL NIACINATE
     Indication: CARDIAC DISORDER
     Dosage: 500 MILLIGRAM, QD
     Route: 048
     Dates: start: 2013
  11. LYRICA [Concomitant]
     Active Substance: PREGABALIN
     Indication: PAIN
     Dosage: 300 MILLIGRAM, QD
     Route: 048
     Dates: start: 2010
  12. NITROSTAT [Concomitant]
     Active Substance: NITROGLYCERIN
     Indication: CHEST PAIN
     Dosage: 0.4 MG X 3 TABS PRN
     Route: 050
     Dates: start: 2013
  13. BRILINTA [Suspect]
     Active Substance: TICAGRELOR
     Indication: ANTICOAGULANT THERAPY
     Dosage: 180 MILLIGRAM, QD
     Route: 048
     Dates: start: 2012
  14. PRILOSEC [Suspect]
     Active Substance: OMEPRAZOLE MAGNESIUM
     Indication: GASTRIC DISORDER
     Dosage: 40 MILLIGRAM, QD
     Route: 048
     Dates: start: 2002, end: 2010
  15. CHOLECALCIFEROL [Concomitant]
     Active Substance: CHOLECALCIFEROL
     Indication: BONE DISORDER
     Dosage: 1000 INTERNATIONAL UNIT, QD
     Route: 048
     Dates: start: 2013
  16. DULOXETINE HYDROCHLORIDE. [Concomitant]
     Active Substance: DULOXETINE HYDROCHLORIDE
     Indication: PAIN
  17. TEMAZEPAM. [Concomitant]
     Active Substance: TEMAZEPAM
     Indication: ANXIETY
     Dosage: 2 MGHS 1 MG BID DAILY
     Route: 048
     Dates: start: 2000
  18. TEMAZEPAM. [Concomitant]
     Active Substance: TEMAZEPAM
     Indication: PANIC ATTACK
  19. BACLOFEN. [Concomitant]
     Active Substance: BACLOFEN
     Indication: MUSCLE SPASMS
     Dosage: 10.0MG UNKNOWN
     Route: 048
  20. POTASSIUM CHLORIDE. [Concomitant]
     Active Substance: POTASSIUM CHLORIDE
     Indication: BLOOD POTASSIUM DECREASED
     Dosage: 20 MILLIEQUIVALENT, QD
     Route: 048
     Dates: start: 2012
  21. CRESTOR [Suspect]
     Active Substance: ROSUVASTATIN CALCIUM
     Dosage: 10 MILLIGRAM, QD
     Route: 048
  22. CYANOCOBALAMIN. [Concomitant]
     Active Substance: CYANOCOBALAMIN
     Indication: SUPPLEMENTATION THERAPY
     Dosage: DAILY
     Route: 048
  23. NITRO [Concomitant]
     Active Substance: NITROGLYCERIN
     Indication: CHEST PAIN
     Dosage: 100.0MG AS REQUIRED
  24. PRINIVIL [Suspect]
     Active Substance: LISINOPRIL
     Indication: CARDIAC DISORDER
     Dosage: 2.5 MILLIGRAM, QD
     Route: 048
     Dates: start: 2013
  25. NEXIUM [Suspect]
     Active Substance: ESOMEPRAZOLE MAGNESIUM
     Dosage: 40 MILLIGRAM, QD
     Route: 048
     Dates: start: 2010
  26. LIDOCAINE. [Suspect]
     Active Substance: LIDOCAINE
     Indication: PAIN IN EXTREMITY
     Dosage: HS
     Route: 065
  27. KLONOPIN [Concomitant]
     Active Substance: CLONAZEPAM
  28. ASPIRIN. [Concomitant]
     Active Substance: ASPIRIN
     Indication: CARDIAC DISORDER
     Dosage: DAILY
     Route: 048
     Dates: start: 2013
  29. ASPIRIN. [Concomitant]
     Active Substance: ASPIRIN
     Indication: MYOCARDIAL INFARCTION
     Dosage: 81 MILLIGRAM, QD
     Route: 048
  30. CLONAZEPAM. [Concomitant]
     Active Substance: CLONAZEPAM
     Indication: PANIC ATTACK
     Dosage: 1 MILLIGRAM, QD
     Route: 048
  31. XANAX [Concomitant]
     Active Substance: ALPRAZOLAM
  32. FENTANYL. [Concomitant]
     Active Substance: FENTANYL
     Indication: NEURALGIA
     Dosage: 50 MILLIGRAM, BID
     Route: 061
     Dates: start: 2000
  33. CRESTOR [Suspect]
     Active Substance: ROSUVASTATIN CALCIUM
     Indication: BLOOD CHOLESTEROL ABNORMAL
     Dosage: 5 MILLIGRAM, QD
     Route: 048
     Dates: start: 2012
  34. NEXIUM [Suspect]
     Active Substance: ESOMEPRAZOLE MAGNESIUM
     Dosage: 20 MILLIGRAM, QD
     Route: 048
     Dates: start: 2010
  35. TIZANIDINE HYDROCHLORIDE. [Concomitant]
     Active Substance: TIZANIDINE HYDROCHLORIDE
     Indication: PAIN
     Dosage: 12 MILLIGRAM, QD
     Route: 048
  36. LYRICA [Concomitant]
     Active Substance: PREGABALIN
     Indication: FIBROMYALGIA
  37. CLONAZEPAM. [Concomitant]
     Active Substance: CLONAZEPAM
     Dosage: 2 MILLIGRAM, QD
     Route: 048
  38. HYDROCODONE [Concomitant]
     Active Substance: HYDROCODONE
     Indication: BREAKTHROUGH PAIN
     Dosage: 10-325MG 1-1.5 TABS PRN
     Route: 048
  39. CRESTOR [Suspect]
     Active Substance: ROSUVASTATIN CALCIUM
     Indication: CORONARY ARTERY DISEASE
     Dosage: 10 MILLIGRAM, QD
     Route: 048
     Dates: start: 20150705
  40. FUROSEMIDE. [Concomitant]
     Active Substance: FUROSEMIDE
     Indication: PERIPHERAL SWELLING
     Dosage: 20MG DAILY PRN
     Route: 048
     Dates: start: 2009
  41. CENTRUM SILVER [Concomitant]
     Active Substance: MINERALS\VITAMINS
     Dosage: 1 DOSAGE FORM, QD
  42. PRINIVIL [Suspect]
     Active Substance: LISINOPRIL
     Dosage: 2.5 MILLIGRAM, QD
     Route: 048
     Dates: start: 2012
  43. BRILINTA [Suspect]
     Active Substance: TICAGRELOR
     Indication: CARDIAC DISORDER
     Dosage: 90.0MG UNKNOWN
     Route: 048
  44. TIZANIDINE HYDROCHLORIDE. [Concomitant]
     Active Substance: TIZANIDINE HYDROCHLORIDE
     Indication: MUSCLE SPASMS
     Dosage: 1-3 TABS HS PRN
     Route: 048
     Dates: start: 2009
  45. IMODIUM [Concomitant]
     Active Substance: LOPERAMIDE HYDROCHLORIDE
     Indication: DIARRHOEA
     Dosage: NOT REPORTED PRN
     Route: 048
  46. DULOXETINE HYDROCHLORIDE. [Concomitant]
     Active Substance: DULOXETINE HYDROCHLORIDE
     Indication: FIBROMYALGIA
     Dosage: 60 MILLIGRAM, QD
     Route: 048
     Dates: start: 2011
  47. CARBAMAZEPINE. [Concomitant]
     Active Substance: CARBAMAZEPINE
     Indication: PAIN IN EXTREMITY
     Dosage: 100.0MG AS REQUIRED
     Route: 048
  48. NITROSTAT [Concomitant]
     Active Substance: NITROGLYCERIN
     Dosage: 0.4MG AS REQUIRED
     Route: 050

REACTIONS (41)
  - Sensory loss [Unknown]
  - Epistaxis [Unknown]
  - Pain [Unknown]
  - Illness [Unknown]
  - Contusion [Unknown]
  - Epigastric discomfort [Unknown]
  - Joint swelling [Unknown]
  - Immune system disorder [Unknown]
  - Burning sensation [Unknown]
  - Weight decreased [Unknown]
  - Intentional product misuse [Unknown]
  - Body height decreased [Unknown]
  - Arterial occlusive disease [Unknown]
  - Head discomfort [Unknown]
  - Wrist deformity [Unknown]
  - Urticaria [Not Recovered/Not Resolved]
  - Acute myocardial infarction [Unknown]
  - Blood pressure decreased [Unknown]
  - Product dose omission issue [Unknown]
  - Skin discolouration [Unknown]
  - Pain [Unknown]
  - Haemorrhage [Unknown]
  - Asthenia [Unknown]
  - Pneumonia [Unknown]
  - Insomnia [Unknown]
  - Vomiting [Unknown]
  - Bone disorder [Unknown]
  - Blood cholesterol increased [Unknown]
  - Myocardial infarction [Unknown]
  - Neuralgia [Unknown]
  - Anal incontinence [Unknown]
  - Loss of consciousness [Unknown]
  - Urinary incontinence [Unknown]
  - Memory impairment [Unknown]
  - Decubitus ulcer [Unknown]
  - Volume blood decreased [Unknown]
  - Drug ineffective [Unknown]
  - Arachnoiditis [Unknown]
  - Pain in extremity [Unknown]
  - Intracranial aneurysm [Unknown]
  - Panic attack [Unknown]

NARRATIVE: CASE EVENT DATE: 2004
